FAERS Safety Report 11221879 (Version 1)
Quarter: 2015Q2

REPORT INFORMATION
  Report Type: Spontaneous
  Country: CZ (occurrence: CZ)
  Receive Date: 20150626
  Receipt Date: 20150626
  Transmission Date: 20150821
  Serious: Yes (Hospitalization, Other)
  Sender: FDA-Public Use
  Company Number: CZ-GLAXOSMITHKLINE-CZ2015089774

PATIENT
  Age: 1 Year
  Sex: Female
  Weight: 11 kg

DRUGS (2)
  1. AMOKSIKLAV [Suspect]
     Active Substance: AMOXICILLIN\CLAVULANATE POTASSIUM
     Indication: PYELONEPHRITIS ACUTE
     Route: 042
     Dates: start: 20150521, end: 20150525
  2. ZINNAT [Suspect]
     Active Substance: CEFUROXIME AXETIL
     Indication: PYELONEPHRITIS ACUTE
     Dates: start: 20150525, end: 20150530

REACTIONS (2)
  - Diarrhoea [Recovered/Resolved]
  - Escherichia pyelonephritis [Unknown]

NARRATIVE: CASE EVENT DATE: 20150525
